FAERS Safety Report 6251489-7 (Version None)
Quarter: 2009Q2

REPORT INFORMATION
  Report Type: 
  Country: None (occurrence: None)
  Receive Date: 20090630
  Receipt Date: 20090623
  Transmission Date: 20091009
  Serious: Yes (Hospitalization)
  Sender: FDA-Public Use
  Company Number: US-JNJFOC-20090608361

PATIENT
  Sex: Female
  Weight: 108.86 kg

DRUGS (8)
  1. FENTANYL TRANSDERMAL SYSTEM [Suspect]
     Route: 062
  2. FENTANYL TRANSDERMAL SYSTEM [Suspect]
     Route: 062
  3. FENTANYL TRANSDERMAL SYSTEM [Suspect]
     Route: 062
  4. FENTANYL TRANSDERMAL SYSTEM [Suspect]
     Route: 062
  5. FENTANYL TRANSDERMAL SYSTEM [Suspect]
     Indication: PROCTALGIA
     Route: 062
  6. DIOVAN [Concomitant]
     Indication: HYPERTENSION
     Route: 048
  7. METFORMIN HCL [Concomitant]
     Indication: DIABETES MELLITUS
     Route: 048
  8. TYLENOL (CAPLET) [Concomitant]
     Indication: ARTHRALGIA
     Route: 048

REACTIONS (10)
  - CONSTIPATION [None]
  - DRUG ADMINISTERED AT INAPPROPRIATE SITE [None]
  - DRUG DOSE OMISSION [None]
  - DRUG INEFFECTIVE [None]
  - HYPOPHAGIA [None]
  - HYPOTENSION [None]
  - INCONTINENCE [None]
  - JOINT SWELLING [None]
  - THROMBOSIS [None]
  - WEIGHT DECREASED [None]
